FAERS Safety Report 24592453 (Version 1)
Quarter: 2024Q4

REPORT INFORMATION
  Report Type: Report from Study
  Country: CN (occurrence: CN)
  Receive Date: 20241108
  Receipt Date: 20241108
  Transmission Date: 20250115
  Serious: Yes (Other)
  Sender: ROCHE
  Company Number: CN-ROCHE-10000120263

PATIENT
  Age: 54 Year
  Sex: Male

DRUGS (1)
  1. RITUXIMAB [Suspect]
     Active Substance: RITUXIMAB
     Indication: Diffuse large B-cell lymphoma
     Route: 065
     Dates: start: 20240618

REACTIONS (25)
  - Hepatic steatosis [Unknown]
  - Pulmonary mass [Unknown]
  - Pneumonia [Recovering/Resolving]
  - Renal failure [Unknown]
  - Pelvic fluid collection [Unknown]
  - Atelectasis [Unknown]
  - Aortic arteriosclerosis [Unknown]
  - Pericardial effusion [Unknown]
  - Thyroid mass [Unknown]
  - Hyperplasia adrenal [Unknown]
  - Prostatomegaly [Unknown]
  - Anaemia [Unknown]
  - Spinal osteoarthritis [Unknown]
  - Axillary mass [Unknown]
  - Lung opacity [Unknown]
  - Pleural thickening [Unknown]
  - Lymphadenopathy mediastinal [Unknown]
  - Adrenal mass [Unknown]
  - Metabolic disorder [Unknown]
  - Lymphadenopathy [Unknown]
  - Pancreatic mass [Unknown]
  - Retroperitoneal lymphadenopathy [Unknown]
  - Abdominal mass [Unknown]
  - Splenic lesion [Unknown]
  - Splenic neoplasm malignancy unspecified [Unknown]

NARRATIVE: CASE EVENT DATE: 20240820
